FAERS Safety Report 7456163-7 (Version None)
Quarter: 2011Q2

REPORT INFORMATION
  Report Type: 
  Country: None (occurrence: None)
  Receive Date: 20110503
  Receipt Date: 20110419
  Transmission Date: 20111010
  Serious: Yes (Hospitalization)
  Sender: FDA-Public Use
  Company Number: IE-GENENTECH-317563

PATIENT
  Sex: Male

DRUGS (3)
  1. XOLAIR [Suspect]
     Indication: ASTHMA
     Dosage: 375 MG, Q2W
     Route: 058
     Dates: start: 20110316
  2. XOLAIR [Suspect]
     Dosage: UNK MG, Q2W
     Route: 058
     Dates: start: 20110330
  3. XOLAIR [Suspect]
     Dosage: UNK MG, Q2W
     Route: 058
     Dates: start: 20110413

REACTIONS (1)
  - ASTHMA [None]
